FAERS Safety Report 15464442 (Version 2)
Quarter: 2019Q3

REPORT INFORMATION
  Report Type: Spontaneous
  Country: US (occurrence: US)
  Receive Date: 20181004
  Receipt Date: 20190805
  Transmission Date: 20191004
  Serious: Yes (Hospitalization, Disabling, Other)
  Sender: FDA-Public Use
  Company Number: US-JNJFOC-20180926692

PATIENT
  Age: 51 Year
  Sex: Male

DRUGS (2)
  1. INVOKANA [Suspect]
     Active Substance: CANAGLIFLOZIN
     Indication: DIABETES MELLITUS
     Route: 048
     Dates: start: 201501
  2. INVOKANA [Suspect]
     Active Substance: CANAGLIFLOZIN
     Indication: DIABETES MELLITUS MANAGEMENT

REACTIONS (9)
  - Osteomyelitis [Unknown]
  - Sepsis [Unknown]
  - Toe amputation [Unknown]
  - Diabetic foot [Unknown]
  - Weight decreased [Unknown]
  - Leg amputation [Unknown]
  - Polyuria [Unknown]
  - Dry gangrene [Unknown]
  - Foot amputation [Unknown]

NARRATIVE: CASE EVENT DATE: 2015
